FAERS Safety Report 19178820 (Version 1)
Quarter: 2021Q2

REPORT INFORMATION
  Report Type: Spontaneous
  Country: US (occurrence: US)
  Receive Date: 20210421
  Receipt Date: 20210421
  Transmission Date: 20210717
  Serious: Yes (Other)
  Sender: FDA-Public Use
  Company Number: None

PATIENT
  Age: 77 Year
  Sex: Male
  Weight: 73.8 kg

DRUGS (22)
  1. RIVASTIGMINE TRANSDERMAL SYSTEM [Suspect]
     Active Substance: RIVASTIGMINE
     Indication: DEMENTIA ALZHEIMER^S TYPE
     Dosage: ?          QUANTITY:30 PATCH(ES);?
     Route: 062
     Dates: start: 20200213, end: 20210325
  2. TARO BRAND DENTAL PASTE [Concomitant]
  3. ALASKAN CHAGA MUSHROOM [Concomitant]
  4. FIBER WELL [Concomitant]
  5. CFU HAIR, SKIN + NAIL GUMMIES W/BIOTOIN [Concomitant]
  6. VITAL RESTORE [Concomitant]
  7. VITAMIN B12 [Concomitant]
     Active Substance: CYANOCOBALAMIN
  8. ADULT MULTIVITAMIN [Concomitant]
  9. TRIAMCINOLONE ACETONIDE. [Concomitant]
     Active Substance: TRIAMCINOLONE ACETONIDE
  10. FOCUS FACTOR [Concomitant]
  11. MELATONIN GUMMIES [Concomitant]
  12. CALCIUM W/ D?3 [Concomitant]
  13. L?SERINE [Concomitant]
  14. LION^S MANE [Concomitant]
  15. VITAMIN D3 [Concomitant]
     Active Substance: CHOLECALCIFEROL
  16. PRO?BIOTICS [Concomitant]
  17. TUMERIC [Concomitant]
     Active Substance: HERBALS\TURMERIC
  18. MICROBIOME SUPPORT ZINC GUMMIES [Concomitant]
  19. GALANTAMINE ER [Concomitant]
     Active Substance: GALANTAMINE
  20. VITAMIN E [Concomitant]
     Active Substance: .ALPHA.-TOCOPHEROL
  21. BIOTIN [Concomitant]
     Active Substance: BIOTIN
  22. VITAMIN C [Concomitant]
     Active Substance: ASCORBIC ACID

REACTIONS (3)
  - Dyskinesia [None]
  - Muscle twitching [None]
  - Head titubation [None]

NARRATIVE: CASE EVENT DATE: 20210205
